FAERS Safety Report 11716210 (Version 1)
Quarter: 2015Q4

REPORT INFORMATION
  Report Type: Spontaneous
  Country: US (occurrence: US)
  Receive Date: 20151109
  Receipt Date: 20151109
  Transmission Date: 20160304
  Serious: Yes (Death, Other)
  Sender: FDA-Public Use
  Company Number: US-SA-2015SA177398

PATIENT
  Age: 85 Year
  Sex: Male

DRUGS (1)
  1. LASIX [Suspect]
     Active Substance: FUROSEMIDE
     Route: 065

REACTIONS (7)
  - Cardiac failure congestive [Unknown]
  - Acute kidney injury [Unknown]
  - Urinary tract infection [Unknown]
  - Generalised oedema [Unknown]
  - Hypothyroidism [Unknown]
  - Death [Fatal]
  - Gastrooesophageal reflux disease [Unknown]
